FAERS Safety Report 19120263 (Version 2)
Quarter: 2021Q2

REPORT INFORMATION
  Report Type: Spontaneous
  Country: US (occurrence: US)
  Receive Date: 20210412
  Receipt Date: 20210428
  Transmission Date: 20210717
  Serious: No
  Sender: FDA-Public Use
  Company Number: US-ASTRAZENECA-2021A275531

PATIENT
  Age: 19337 Day
  Sex: Female

DRUGS (1)
  1. FASENRA [Suspect]
     Active Substance: BENRALIZUMAB
     Dosage: 30 MG; EVERY SIX WEEKS
     Route: 058
     Dates: start: 2020

REACTIONS (8)
  - Bone pain [Unknown]
  - Injection site pain [Unknown]
  - Menstrual disorder [Unknown]
  - Product dose omission issue [Unknown]
  - Systemic lupus erythematosus [Unknown]
  - Device leakage [Unknown]
  - Muscle spasms [Unknown]
  - Arthritis [Unknown]

NARRATIVE: CASE EVENT DATE: 20210402
